FAERS Safety Report 5151199-3 (Version None)
Quarter: 2006Q4

REPORT INFORMATION
  Report Type: 
  Country: None (occurrence: None)
  Receive Date: 20061113
  Receipt Date: 20061113
  Transmission Date: 20070319
  Serious: Yes (Life-Threatening, Hospitalization)
  Sender: FDA-Public Use
  Company Number: None

PATIENT
  Sex: Female
  Weight: 54.8852 kg

DRUGS (2)
  1. SIMVASTATIN [Suspect]
     Indication: BLOOD CHOLESTEROL INCREASED
     Dosage: 20 MG  10/12/2006
     Dates: start: 20061012
  2. SIMVASTATIN [Suspect]
     Dosage: 20 MG 10/31/2006
     Dates: start: 20061031

REACTIONS (7)
  - DIARRHOEA [None]
  - GASTRIC HAEMORRHAGE [None]
  - GASTRITIS [None]
  - MALAISE [None]
  - RECTAL HAEMORRHAGE [None]
  - STOMACH DISCOMFORT [None]
  - VOMITING [None]
